FAERS Safety Report 6710389-6 (Version None)
Quarter: 2010Q2

REPORT INFORMATION
  Report Type: 
  Country: None (occurrence: None)
  Receive Date: 20100504
  Receipt Date: 20100429
  Transmission Date: 20101027
  Serious: Yes (Death)
  Sender: FDA-Public Use
  Company Number: US-CELGENEUS-163-21880-10041041

PATIENT
  Sex: Male

DRUGS (4)
  1. REVLIMID [Suspect]
     Indication: MULTIPLE MYELOMA
     Route: 048
     Dates: start: 20080124
  2. REVLIMID [Suspect]
     Route: 048
     Dates: start: 20090401, end: 20090101
  3. REVLIMID [Suspect]
     Dates: start: 20071001
  4. REVLIMID [Suspect]
     Route: 048
     Dates: start: 20090101, end: 20090101

REACTIONS (1)
  - MULTIPLE MYELOMA [None]
